FAERS Safety Report 14651877 (Version 4)
Quarter: 2018Q4

REPORT INFORMATION
  Report Type: Report from Study
  Country: US (occurrence: US)
  Receive Date: 20180317
  Receipt Date: 20181113
  Transmission Date: 20190204
  Serious: Yes (Hospitalization)
  Sender: FDA-Public Use
  Company Number: US-TAKEDA-2018TUS006542

PATIENT
  Age: 21 Year
  Sex: Female

DRUGS (2)
  1. PONATINIB [Suspect]
     Active Substance: PONATINIB
     Indication: CHRONIC MYELOID LEUKAEMIA
     Dosage: 45 MG, QD
     Route: 048
     Dates: start: 201703
  2. PONATINIB [Suspect]
     Active Substance: PONATINIB
     Dosage: 30 MG, QD
     Route: 048

REACTIONS (7)
  - Full blood count increased [Unknown]
  - Memory impairment [Unknown]
  - White blood cell count increased [Unknown]
  - Pain [Unknown]
  - Nausea [Unknown]
  - Headache [Unknown]
  - Pneumonia [Unknown]

NARRATIVE: CASE EVENT DATE: 20180921
